FAERS Safety Report 25981169 (Version 2)
Quarter: 2025Q4

REPORT INFORMATION
  Report Type: Spontaneous
  Country: US (occurrence: US)
  Receive Date: 20251030
  Receipt Date: 20251224
  Transmission Date: 20260118
  Serious: No
  Sender: DIFGEN PHARMACEUTICALS LLC
  Company Number: US-Difgen-012188

PATIENT
  Sex: Female

DRUGS (2)
  1. NICOTINE [Suspect]
     Active Substance: NICOTINE
     Indication: Product used for unknown indication
     Dosage: PATCHES FROM SECOND CARTON, PRODUCT NUMBER 301402
     Route: 062
     Dates: start: 20251005
  2. NICOTINE [Suspect]
     Active Substance: NICOTINE
     Indication: Product used for unknown indication
     Route: 062
     Dates: start: 20251006

REACTIONS (5)
  - Drug ineffective [Unknown]
  - Product odour abnormal [Unknown]
  - Product colour issue [Unknown]
  - Product adhesion issue [Unknown]
  - Application site rash [Unknown]

NARRATIVE: CASE EVENT DATE: 20251001
